FAERS Safety Report 6966365-1 (Version None)
Quarter: 2010Q3

REPORT INFORMATION
  Report Type: 
  Country: None (occurrence: None)
  Receive Date: 20100903
  Receipt Date: 20100824
  Transmission Date: 20110219
  Serious: Yes (Other)
  Sender: FDA-Public Use
  Company Number: PHHY2010US56058

PATIENT
  Sex: Female

DRUGS (9)
  1. EXTAVIA [Suspect]
     Indication: MULTIPLE SCLEROSIS
     Dosage: 0.25 MG, QOD
     Route: 058
     Dates: start: 20100806
  2. ESTRADIOL [Concomitant]
     Dosage: 1 MG, QD
  3. SYNTHROID [Concomitant]
     Dosage: 0.88 MG, QD
  4. DETROL [Concomitant]
     Dosage: 4 MG, QD
  5. ZOLOFT [Concomitant]
     Dosage: 100 MG, QD
  6. AMBIEN [Concomitant]
     Dosage: 10 MG, PRN
  7. LYRICA [Concomitant]
     Dosage: 75 MG, TID
  8. LYRICA [Concomitant]
     Dosage: 75 MG, PRN
  9. ZYRTEC [Concomitant]
     Dosage: 10 MG, QD

REACTIONS (6)
  - CHILLS [None]
  - INJECTION SITE ERYTHEMA [None]
  - INJECTION SITE SWELLING [None]
  - MUSCLE SPASTICITY [None]
  - NAUSEA [None]
  - PYREXIA [None]
